FAERS Safety Report 20995128 (Version 3)
Quarter: 2022Q3

REPORT INFORMATION
  Report Type: Report from Study
  Country: JP (occurrence: JP)
  Receive Date: 20220622
  Receipt Date: 20220707
  Transmission Date: 20221027
  Serious: Yes (Hospitalization)
  Sender: FDA-Public Use
  Company Number: JP-ONO-2022JP016267

PATIENT
  Age: 59 Year
  Sex: Female
  Weight: 55.6 kg

DRUGS (24)
  1. BMS-986310 [Suspect]
     Active Substance: BMS-986310
     Indication: Pancreatic carcinoma
     Route: 048
     Dates: start: 20220415, end: 20220526
  2. OXALIPLATIN [Suspect]
     Active Substance: OXALIPLATIN
     Indication: Pancreatic carcinoma
     Route: 065
     Dates: start: 20220415, end: 20220513
  3. LEVOLEUCOVORIN CALCIUM [Suspect]
     Active Substance: LEVOLEUCOVORIN CALCIUM
     Indication: Pancreatic carcinoma
     Route: 065
     Dates: start: 20220415, end: 20220513
  4. IRINOTECAN [Suspect]
     Active Substance: IRINOTECAN
     Indication: Pancreatic carcinoma
     Route: 065
     Dates: start: 20220415, end: 20220513
  5. FLUOROURACIL [Suspect]
     Active Substance: FLUOROURACIL
     Indication: Pancreatic carcinoma
     Route: 065
     Dates: start: 20220415, end: 20220513
  6. HERBALS [Concomitant]
     Active Substance: HERBALS
     Indication: Pancreatic carcinoma
     Dosage: AS NECESSARY, PRN
     Route: 048
  7. DIETARY SUPPLEMENT\PROBIOTICS [Concomitant]
     Active Substance: DIETARY SUPPLEMENT\PROBIOTICS
     Indication: Prophylaxis against diarrhoea
     Route: 048
     Dates: start: 20220421
  8. CALONAL [Concomitant]
     Active Substance: ACETAMINOPHEN
     Indication: Cancer pain
     Dosage: 400 MG, PRN
     Route: 048
  9. URSODIOL [Concomitant]
     Active Substance: URSODIOL
     Indication: Pancreatic carcinoma
     Route: 048
  10. NIPRADILOL [Concomitant]
     Active Substance: NIPRADILOL
     Indication: Normal tension glaucoma
     Dosage: 1 DROP, Q12H
     Route: 047
  11. HYALURONATE SODIUM [Concomitant]
     Active Substance: HYALURONATE SODIUM
     Indication: Prophylaxis
     Dosage: 1 DROP, PRN
     Route: 047
  12. DIQUAFOSOL TETRASODIUM [Concomitant]
     Active Substance: DIQUAFOSOL TETRASODIUM
     Indication: Normal tension glaucoma
     Dosage: 1 DROP, PRN
     Route: 047
  13. YEAST [Concomitant]
     Active Substance: YEAST
     Indication: Nutritional supplementation
     Dosage: 5-10 TABLETS/TIME, PRN
     Route: 048
  14. OLANZAPINE [Concomitant]
     Active Substance: OLANZAPINE
     Indication: Nausea
     Dosage: 2.5 MG, EVERYDAY
     Route: 048
     Dates: start: 20220420
  15. EDOXABAN TOSYLATE [Concomitant]
     Active Substance: EDOXABAN TOSYLATE
     Indication: Thrombosis
     Dosage: 30 MG, EVERYDAY
     Route: 048
     Dates: start: 20220506
  16. FUROSEMIDE [Concomitant]
     Active Substance: FUROSEMIDE
     Indication: Oedema
     Dosage: 20 MG, EVERYDAY
     Route: 048
     Dates: start: 20220527
  17. FERROUS SULFATE [Concomitant]
     Active Substance: FERROUS SULFATE
     Indication: Anaemia
     Dosage: 105 MG, EVERYDAY
     Route: 048
     Dates: start: 20220527, end: 20220609
  18. NERIZA [Concomitant]
     Indication: Prophylaxis
     Dosage: 2 G, PRN
     Route: 061
     Dates: start: 20220527
  19. LEVOFLOXACIN HEMIHYDRATE [Concomitant]
     Active Substance: LEVOFLOXACIN
     Indication: Prophylaxis
     Dosage: 500 MG, EVERYDAY
     Route: 048
     Dates: start: 20220607, end: 20220609
  20. SENNOSIDES [Concomitant]
     Active Substance: SENNOSIDES
     Indication: Constipation
     Dosage: 12 MG, PRN
     Route: 048
     Dates: start: 20220417
  21. MOSAPRIDE CITRATE DIHYDRATE [Concomitant]
     Active Substance: MOSAPRIDE CITRATE DIHYDRATE
     Indication: Abdominal distension
     Dosage: 5 MG, PRN
     Route: 048
     Dates: start: 20220428
  22. LECICARBON [Concomitant]
     Indication: Constipation
     Dosage: 1 DF, PRN
     Route: 054
     Dates: start: 20220423
  23. AMLODIPINE [Concomitant]
     Active Substance: AMLODIPINE BESYLATE
     Indication: Hypertension
     Dosage: 2.5 MG, EVERYDAY
     Route: 048
     Dates: start: 20220428
  24. NEXIUM [Concomitant]
     Active Substance: ESOMEPRAZOLE MAGNESIUM
     Indication: Prophylaxis against gastrointestinal ulcer
     Dosage: 20 MG, EVERYDAY
     Route: 048
     Dates: start: 20220527, end: 20220609

REACTIONS (1)
  - Liver disorder [Recovering/Resolving]

NARRATIVE: CASE EVENT DATE: 20220609
